FAERS Safety Report 8472342-4 (Version None)
Quarter: 2012Q2

REPORT INFORMATION
  Report Type: 
  Country: None (occurrence: None)
  Receive Date: 20120627
  Receipt Date: 20120618
  Transmission Date: 20120825
  Serious: Yes (Other)
  Sender: FDA-Public Use
  Company Number: US-ACTELION-A-US2012-66624

PATIENT

DRUGS (5)
  1. CRESTOR [Concomitant]
  2. ENBREL [Concomitant]
  3. LUPRON [Concomitant]
  4. TRACLEER [Suspect]
     Indication: PULMONARY ARTERIAL HYPERTENSION
     Dosage: UNK
     Route: 048
     Dates: start: 20091029
  5. TYVASO [Concomitant]

REACTIONS (3)
  - THROAT IRRITATION [None]
  - BENIGN SPLEEN TUMOUR [None]
  - HEPATIC MASS [None]
